FAERS Safety Report 10020072 (Version 1)
Quarter: 2014Q1

REPORT INFORMATION
  Report Type: Spontaneous
  Country: US (occurrence: US)
  Receive Date: 20140318
  Receipt Date: 20140318
  Transmission Date: 20141002
  Serious: Yes (Other)
  Sender: FDA-Public Use
  Company Number: US-009507513-1403USA006358

PATIENT
  Age: 31 Year
  Sex: Female

DRUGS (1)
  1. INTRONA [Suspect]
     Indication: MALIGNANT MELANOMA

REACTIONS (5)
  - Malignant melanoma [Not Recovered/Not Resolved]
  - Splenectomy [Not Recovered/Not Resolved]
  - Shoulder arthroplasty [Not Recovered/Not Resolved]
  - Breast mass [Not Recovered/Not Resolved]
  - Influenza like illness [Not Recovered/Not Resolved]
